FAERS Safety Report 8445555-5 (Version None)
Quarter: 2012Q2

REPORT INFORMATION
  Report Type: 
  Country: None (occurrence: None)
  Receive Date: 20120323
  Receipt Date: 20111028
  Transmission Date: 20120825
  Serious: Yes (Other)
  Sender: FDA-Public Use
  Company Number: 163-21880-11110143

PATIENT
  Age: 43 Year
  Sex: Male

DRUGS (7)
  1. FLEXERIL [Concomitant]
  2. MULTIVITAMIN [Concomitant]
  3. NORVASC [Concomitant]
  4. GABAPENTIN [Concomitant]
  5. REVLIMID [Suspect]
     Indication: MYELOFIBROSIS
     Dosage: 5 MG, DAILY FOR 21 DAYS, PO
     Route: 048
     Dates: start: 20110503
  6. ASPIRIN [Concomitant]
  7. ROBAXIN [Concomitant]

REACTIONS (1)
  - FULL BLOOD COUNT DECREASED [None]
